FAERS Safety Report 6745373-X (Version None)
Quarter: 2010Q2

REPORT INFORMATION
  Report Type: 
  Country: None (occurrence: None)
  Receive Date: 20100528
  Receipt Date: 20100518
  Transmission Date: 20101027
  Serious: No
  Sender: FDA-Public Use
  Company Number: US-BIOGENIDEC-2010BI016656

PATIENT
  Sex: Female

DRUGS (2)
  1. AVONEX [Suspect]
     Indication: MULTIPLE SCLEROSIS
     Route: 030
     Dates: start: 20010203, end: 20071112
  2. AVONEX [Suspect]
     Route: 030
     Dates: start: 20090422

REACTIONS (4)
  - FALL [None]
  - GAIT DISTURBANCE [None]
  - URINARY TRACT INFECTION [None]
  - VISUAL IMPAIRMENT [None]
